FAERS Safety Report 20040155 (Version 2)
Quarter: 2021Q4

REPORT INFORMATION
  Report Type: Other
  Country: JP (occurrence: JP)
  Receive Date: 20211106
  Receipt Date: 20211111
  Transmission Date: 20220304
  Serious: Yes (Death, Hospitalization, Other)
  Sender: FDA-Public Use
  Company Number: JP-CHUGAI-2021024599

PATIENT
  Age: 43 Year
  Sex: Female

DRUGS (4)
  1. AVASTIN [Suspect]
     Active Substance: BEVACIZUMAB
     Indication: Ovarian cancer
     Route: 041
  2. AVASTIN [Suspect]
     Active Substance: BEVACIZUMAB
     Route: 041
  3. PACLITAXEL [Concomitant]
     Active Substance: PACLITAXEL
     Indication: Ovarian cancer
     Route: 041
  4. DOXORUBICIN HYDROCHLORIDE [Concomitant]
     Active Substance: DOXORUBICIN HYDROCHLORIDE
     Indication: Ovarian cancer
     Route: 041

REACTIONS (3)
  - Disease progression [Fatal]
  - Cardiac tamponade [Recovering/Resolving]
  - Lymphangiosis carcinomatosa [Unknown]
